FAERS Safety Report 19886217 (Version 1)
Quarter: 2021Q3

REPORT INFORMATION
  Report Type: Spontaneous
  Country: FR (occurrence: FR)
  Receive Date: 20210928
  Receipt Date: 20210928
  Transmission Date: 20211014
  Serious: Yes (Hospitalization)
  Sender: FDA-Public Use
  Company Number: NVSC2021FR217341

PATIENT
  Age: 26 Year
  Sex: Female
  Weight: 84 kg

DRUGS (9)
  1. RISPERIDONE. [Suspect]
     Active Substance: RISPERIDONE
     Dosage: 6 MG, QD
     Route: 048
     Dates: start: 20210818, end: 20210819
  2. LOXAPAC [Suspect]
     Active Substance: LOXAPINE
     Indication: AGITATION
     Dosage: 15 DRP, QD
     Route: 048
     Dates: start: 20210805, end: 20210808
  3. LOXAPAC [Suspect]
     Active Substance: LOXAPINE
     Dosage: 15 MG, Q6H
     Route: 048
     Dates: start: 20210814, end: 20210817
  4. LOXAPAC [Suspect]
     Active Substance: LOXAPINE
     Dosage: 10 MG, PRN
     Route: 048
     Dates: start: 20210809, end: 20210813
  5. LOXAPAC [Suspect]
     Active Substance: LOXAPINE
     Dosage: 15 MG, Q12H
     Route: 048
     Dates: start: 20210819, end: 20210820
  6. RISPERIDONE. [Suspect]
     Active Substance: RISPERIDONE
     Dosage: 8 MG, QD
     Route: 048
     Dates: start: 20210817, end: 20210817
  7. RISPERIDONE. [Suspect]
     Active Substance: RISPERIDONE
     Indication: AGITATION
     Dosage: 4 MG, QD
     Route: 048
     Dates: start: 20210813, end: 20210814
  8. RISPERIDONE. [Suspect]
     Active Substance: RISPERIDONE
     Dosage: 6 MG, QD
     Route: 048
     Dates: start: 20210815, end: 20210816
  9. LOXAPAC [Suspect]
     Active Substance: LOXAPINE
     Dosage: 15 MG, Q8H
     Route: 048
     Dates: start: 20210818, end: 20210818

REACTIONS (1)
  - Extrapyramidal disorder [Recovered/Resolved]

NARRATIVE: CASE EVENT DATE: 20210816
